FAERS Safety Report 22208338 (Version 5)
Quarter: 2025Q2

REPORT INFORMATION
  Report Type: Spontaneous
  Country: US (occurrence: US)
  Receive Date: 20230413
  Receipt Date: 20250513
  Transmission Date: 20250717
  Serious: No
  Sender: NOVARTIS
  Company Number: US-002147023-NVSC2023US085058

PATIENT
  Sex: Female

DRUGS (1)
  1. COSENTYX [Suspect]
     Active Substance: SECUKINUMAB
     Indication: Product used for unknown indication
     Dosage: UNK, QMO (DOSE: 300 MG/ML) (EVERY 28 DAYS)
     Route: 065
     Dates: start: 20130430

REACTIONS (4)
  - Device defective [Unknown]
  - Injection site pain [Unknown]
  - Device leakage [Unknown]
  - Incorrect dose administered by device [Unknown]
